FAERS Safety Report 8698077 (Version 2)
Quarter: 2012Q4

REPORT INFORMATION
  Report Type: 
  Country: US (occurrence: US)
  Receive Date: 20120802
  Receipt Date: 20121011
  Transmission Date: 20130627
  Serious: Yes (Other)
  Sender: FDA-Public Use
  Company Number: US-BIOGENIDEC-2012BI027609

PATIENT
  Age: 31 Year
  Sex: Female
  Weight: 64 kg

DRUGS (12)
  1. TYSABRI [Suspect]
     Indication: MULTIPLE SCLEROSIS
     Route: 042
     Dates: start: 20110210, end: 20120229
  2. ORTHO TRI CYCLEN [Concomitant]
     Indication: MUSCLE SPASMS
     Route: 048
  3. ORTHO TRI CYCLEN [Concomitant]
     Indication: SLEEP DISORDER
     Route: 048
  4. LEXAPRO [Concomitant]
     Route: 048
  5. LIORESAL [Concomitant]
     Indication: MUSCULOSKELETAL STIFFNESS
     Route: 048
  6. KLONOPIN [Concomitant]
     Indication: MUSCLE SPASMS
     Route: 048
  7. FLOMAX [Concomitant]
     Route: 048
  8. FAMPRIDINE [Concomitant]
     Route: 048
  9. ADDERALL [Concomitant]
     Route: 048
  10. BOTULINUM TOXIN TYPE A [Concomitant]
     Route: 030
     Dates: start: 20120307
  11. METROGEL [Concomitant]
     Route: 067
  12. VALIUM [Concomitant]
     Indication: PREMEDICATION

REACTIONS (1)
  - Dermatofibrosarcoma protuberans [Recovered/Resolved]
